FAERS Safety Report 18272355 (Version 1)
Quarter: 2020Q3

REPORT INFORMATION
  Report Type: Spontaneous
  Country: ES (occurrence: ES)
  Receive Date: 20200916
  Receipt Date: 20200916
  Transmission Date: 20201103
  Serious: Yes (Other)
  Sender: FDA-Public Use
  Company Number: ES-ACCORD-201219

PATIENT
  Age: 84 Year
  Sex: Female

DRUGS (3)
  1. TRAZODONE [Suspect]
     Active Substance: TRAZODONE HYDROCHLORIDE
     Indication: MIXED DEMENTIA
     Route: 048
     Dates: start: 20190923, end: 20191211
  2. TRAZODONE [Suspect]
     Active Substance: TRAZODONE HYDROCHLORIDE
     Indication: MIXED DEMENTIA
     Route: 048
     Dates: start: 20170628, end: 20190922
  3. TRAZODONE [Suspect]
     Active Substance: TRAZODONE HYDROCHLORIDE
     Indication: MIXED DEMENTIA
     Route: 048
     Dates: start: 20191212

REACTIONS (2)
  - Craniocerebral injury [Recovered/Resolved]
  - Fall [Unknown]

NARRATIVE: CASE EVENT DATE: 20200816
